FAERS Safety Report 22611500 (Version 1)
Quarter: 2023Q2

REPORT INFORMATION
  Report Type: Spontaneous
  Country: CA (occurrence: CA)
  Receive Date: 20230616
  Receipt Date: 20230616
  Transmission Date: 20230722
  Serious: Yes (Death, Hospitalization, Other)
  Sender: FDA-Public Use
  Company Number: CA-FreseniusKabi-FK202308301

PATIENT
  Age: 18 Year
  Sex: Female

DRUGS (12)
  1. PROPOFOL [Suspect]
     Active Substance: PROPOFOL
     Indication: Product used for unknown indication
  2. DIPHENHYDRAMINE [Suspect]
     Active Substance: DIPHENHYDRAMINE
     Indication: Product used for unknown indication
  3. ACETAMINOPHEN [Suspect]
     Active Substance: ACETAMINOPHEN
     Indication: Suicide attempt
     Dosage: DOSAGE FORM: NOT SPECIFIED
     Route: 048
  4. ASPIRIN [Suspect]
     Active Substance: ASPIRIN
     Indication: Suicide attempt
     Dosage: DOSAGE FORM: NOT SPECIFIED
     Route: 065
  5. ASPIRIN [Suspect]
     Active Substance: ASPIRIN
     Indication: Product used for unknown indication
     Dosage: DOSAGE FORM: NOT SPECIFIED
     Route: 048
  6. CITALOPRAM [Suspect]
     Active Substance: CITALOPRAM HYDROBROMIDE
     Indication: Product used for unknown indication
     Dosage: DOSAGE FORM: NOT SPECIFIED
     Route: 048
  7. ALCOHOL [Suspect]
     Active Substance: ALCOHOL
     Indication: Product used for unknown indication
     Route: 048
  8. ISONIAZID [Suspect]
     Active Substance: ISONIAZID
     Indication: Product used for unknown indication
     Route: 065
  9. QUETIAPINE FUMARATE [Suspect]
     Active Substance: QUETIAPINE FUMARATE
     Indication: Suicide attempt
     Route: 048
  10. QUETIAPINE FUMARATE [Suspect]
     Active Substance: QUETIAPINE FUMARATE
     Route: 048
  11. QUETIAPINE FUMARATE [Suspect]
     Active Substance: QUETIAPINE FUMARATE
     Route: 048
  12. ATOMOXETINE [Concomitant]
     Active Substance: ATOMOXETINE
     Indication: Product used for unknown indication
     Route: 065

REACTIONS (20)
  - Agitation [Fatal]
  - Atrial fibrillation [Fatal]
  - Cardiac arrest [Fatal]
  - Cardiac failure [Fatal]
  - Completed suicide [Fatal]
  - Encephalopathy [Fatal]
  - Face oedema [Fatal]
  - Hepatic encephalopathy [Fatal]
  - Hepatic failure [Fatal]
  - Hepatitis [Fatal]
  - Liver injury [Fatal]
  - Congestive hepatopathy [Fatal]
  - Electrocardiogram ST segment elevation [Fatal]
  - Multiple organ dysfunction syndrome [Fatal]
  - Myalgia [Fatal]
  - Myocarditis [Fatal]
  - Nausea [Fatal]
  - Oedema peripheral [Fatal]
  - Intentional overdose [Fatal]
  - Overdose [Fatal]
